FAERS Safety Report 16452757 (Version 1)
Quarter: 2019Q2

REPORT INFORMATION
  Report Type: Spontaneous
  Country: US (occurrence: US)
  Receive Date: 20190619
  Receipt Date: 20190619
  Transmission Date: 20190711
  Serious: No
  Sender: FDA-Public Use
  Company Number: US-SA-2019SA155779

PATIENT
  Sex: Female

DRUGS (1)
  1. LUMIZYME [Suspect]
     Active Substance: ALGLUCOSIDASE ALFA
     Dosage: UNK UNK, UNK
     Route: 041
     Dates: start: 2014

REACTIONS (3)
  - Fall [Unknown]
  - Ligament sprain [Unknown]
  - Urticaria [Unknown]

NARRATIVE: CASE EVENT DATE: 2019
